FAERS Safety Report 8318784-9 (Version None)
Quarter: 2012Q2

REPORT INFORMATION
  Report Type: 
  Country: None (occurrence: None)
  Receive Date: 20120427
  Receipt Date: 20120418
  Transmission Date: 20120825
  Serious: Yes (Other)
  Sender: FDA-Public Use
  Company Number: US-ABBOTT-12P-163-0926664-00

PATIENT
  Sex: Female
  Weight: 113.5 kg

DRUGS (2)
  1. TOPAMAX [Concomitant]
     Indication: PRODUCT USED FOR UNKNOWN INDICATION
  2. HUMIRA [Suspect]
     Indication: RHEUMATOID ARTHRITIS
     Dosage: TOTAL OF 1 DOSE TAKEN
     Route: 058
     Dates: start: 20120201, end: 20120201

REACTIONS (4)
  - TOOTH ABSCESS [None]
  - SINUSITIS [None]
  - INTRACARDIAC THROMBUS [None]
  - TOOTH LOSS [None]
